FAERS Safety Report 17168790 (Version 1)
Quarter: 2019Q4

REPORT INFORMATION
  Report Type: Spontaneous
  Country: US (occurrence: US)
  Receive Date: 20191125
  Receipt Date: 20191125
  Transmission Date: 20200122
  Serious: Yes (Death)
  Sender: FDA-Public Use
  Company Number: None

PATIENT
  Age: 71 Year
  Sex: Male

DRUGS (1)
  1. REVLIMID [Suspect]
     Active Substance: LENALIDOMIDE
     Indication: PLASMA CELL MYELOMA
     Route: 048

REACTIONS (13)
  - Asthenia [None]
  - Peripheral ischaemia [None]
  - Cardiac ventricular thrombosis [None]
  - Fall [None]
  - Dyspnoea [None]
  - Disseminated intravascular coagulation [None]
  - Cardiomyopathy [None]
  - Hepatic failure [None]
  - Acute kidney injury [None]
  - Pneumonia [None]
  - Hyperuricaemia [None]
  - Deep vein thrombosis [None]
  - Pulmonary embolism [None]

NARRATIVE: CASE EVENT DATE: 20190328
